FAERS Safety Report 14211999 (Version 3)
Quarter: 2017Q4

REPORT INFORMATION
  Report Type: Spontaneous
  Country: IT (occurrence: IT)
  Receive Date: 20171122
  Receipt Date: 20171222
  Transmission Date: 20180321
  Serious: Yes (Hospitalization, Other)
  Sender: FDA-Public Use
  Company Number: IT-PFIZER INC-2017502914

PATIENT
  Age: 33 Year
  Sex: Male

DRUGS (3)
  1. ALPRAZOLAM. [Suspect]
     Active Substance: ALPRAZOLAM
     Dosage: 52 GTT, TOTAL
     Route: 048
  2. MIRTAZAPINA EG [Concomitant]
     Indication: PSYCHOTIC DISORDER
     Dosage: 50 MG, UNK
     Route: 048
  3. HALOPERIDOL. [Concomitant]
     Active Substance: HALOPERIDOL
     Indication: PSYCHOTIC DISORDER
     Dosage: 24 GTT, UNK
     Route: 048

REACTIONS (3)
  - Suicide attempt [Unknown]
  - Syncope [Recovering/Resolving]
  - Intentional product misuse [Unknown]

NARRATIVE: CASE EVENT DATE: 20171116
